FAERS Safety Report 12056991 (Version 1)
Quarter: 2016Q1

REPORT INFORMATION
  Report Type: Spontaneous
  Country: US (occurrence: US)
  Receive Date: 20160210
  Receipt Date: 20160210
  Transmission Date: 20160526
  Serious: No
  Sender: FDA-Public Use
  Company Number: US-TEVA-604971USA

PATIENT
  Sex: Female
  Weight: 65.83 kg

DRUGS (2)
  1. LEVOTHYROXINE. [Concomitant]
     Active Substance: LEVOTHYROXINE
  2. NADOLOL. [Suspect]
     Active Substance: NADOLOL
     Indication: PALPITATIONS
     Route: 048
     Dates: start: 20150728

REACTIONS (2)
  - Alopecia [Unknown]
  - Weight increased [Unknown]
